FAERS Safety Report 22057833 (Version 2)
Quarter: 2024Q1

REPORT INFORMATION
  Report Type: Report from Study
  Country: US (occurrence: US)
  Receive Date: 20230303
  Receipt Date: 20240227
  Transmission Date: 20240410
  Serious: No
  Sender: FDA-Public Use
  Company Number: US-ORG100014127-2022000982

PATIENT
  Age: 71 Year
  Sex: Female

DRUGS (4)
  1. METOPIRONE [Suspect]
     Active Substance: METYRAPONE
     Indication: Cushing^s syndrome
     Dosage: 250 MG: TAKE 2 CAPSULES BY MOUTH EVERY MORNING AND 2 CAPSULES BY MOUTH EVERY EVENING
     Route: 048
     Dates: start: 20201217, end: 20230214
  2. METOPIRONE [Suspect]
     Active Substance: METYRAPONE
     Indication: Cushing^s syndrome
     Route: 048
     Dates: start: 20230305
  3. lorazepam tab 1 mg [Concomitant]
     Indication: Product used for unknown indication
  4. mirtazapine tab 15 mg [Concomitant]
     Indication: Product used for unknown indication

REACTIONS (1)
  - Off label use [Not Recovered/Not Resolved]

NARRATIVE: CASE EVENT DATE: 20201217
